FAERS Safety Report 6348557-8 (Version None)
Quarter: 2009Q3

REPORT INFORMATION
  Report Type: 
  Country: None (occurrence: None)
  Receive Date: 20090911
  Receipt Date: 20090904
  Transmission Date: 20100115
  Serious: Yes (Other)
  Sender: FDA-Public Use
  Company Number: SE-JNJFOC-20090901740

PATIENT
  Age: 20 Year
  Sex: Female

DRUGS (8)
  1. CONCERTA [Suspect]
     Indication: ATTENTION DEFICIT/HYPERACTIVITY DISORDER
     Dosage: 36 MG AT 8 AM, 36 MG AT 12 AM AND 18 MG AT 4 PM) INITIATED APPROXIMATELY 1-1.5 YEAR AGO
     Route: 048
  2. VENLAFAXINE [Concomitant]
     Dosage: IN THE EVENING
     Route: 048
  3. OMEPRAZOLE [Concomitant]
     Route: 065
  4. THERALEN [Concomitant]
     Dosage: WHEN NEEDED IN THE EVENING
  5. LEVOTHYROXINE SODIUM [Concomitant]
     Route: 048
  6. CIRCADIN [Concomitant]
     Dosage: IN THE EVENING
     Route: 048
  7. FOLACIN [Concomitant]
     Route: 065
  8. HEMOFER [Concomitant]
     Route: 065

REACTIONS (2)
  - OVERDOSE [None]
  - PETIT MAL EPILEPSY [None]
